FAERS Safety Report 9255209 (Version 2)
Quarter: 2014Q2

REPORT INFORMATION
  Report Type: Spontaneous
  Country: CN (occurrence: CN)
  Receive Date: 20130425
  Receipt Date: 20140606
  Transmission Date: 20141212
  Serious: Yes (Hospitalization)
  Sender: FDA-Public Use
  Company Number: CN-JNJFOC-20130409910

PATIENT
  Age: 25 Year
  Sex: Female

DRUGS (5)
  1. REMICADE [Suspect]
     Indication: JUVENILE IDIOPATHIC ARTHRITIS
     Dosage: AT WEEK 2
     Route: 042
     Dates: start: 201212, end: 201212
  2. REMICADE [Suspect]
     Indication: JUVENILE IDIOPATHIC ARTHRITIS
     Dosage: ON DAY 0
     Route: 042
     Dates: start: 201212, end: 201212
  3. REMICADE [Suspect]
     Indication: JUVENILE IDIOPATHIC ARTHRITIS
     Dosage: AT WEEK 6
     Route: 042
     Dates: start: 2013, end: 2013
  4. PREDNISOLONE [Concomitant]
     Dosage: 10 TABLETS PER DAY
     Route: 048
  5. PREDNISOLONE [Concomitant]
     Dosage: 5-6 TABLETS
     Route: 048

REACTIONS (4)
  - Infection [Recovered/Resolved]
  - Nausea [Recovered/Resolved]
  - Vomiting [Recovered/Resolved]
  - Off label use [Unknown]
